FAERS Safety Report 21255706 (Version 1)
Quarter: 2022Q3

REPORT INFORMATION
  Report Type: Spontaneous
  Country: None (occurrence: US)
  Receive Date: 20220825
  Receipt Date: 20220825
  Transmission Date: 20221027
  Serious: No
  Sender: FDA-Public Use
  Company Number: US-McGuff Pharmaceuticals, Inc.-2132229

PATIENT

DRUGS (1)
  1. ASCOR [Suspect]
     Active Substance: ASCORBIC ACID
     Indication: Urticaria
     Route: 041
     Dates: start: 20211015, end: 20211104

REACTIONS (1)
  - Urticaria [Recovered/Resolved]

NARRATIVE: CASE EVENT DATE: 20211022
